FAERS Safety Report 6069193-7 (Version None)
Quarter: 2009Q1

REPORT INFORMATION
  Report Type: 
  Country: None (occurrence: None)
  Receive Date: 20090206
  Receipt Date: 20090126
  Transmission Date: 20090719
  Serious: Yes (Other)
  Sender: FDA-Public Use
  Company Number: FR-ROCHE-610513

PATIENT
  Sex: Male
  Weight: 76 kg

DRUGS (11)
  1. METHOXY POLYETHYLENE GLYCOL-EPOETIN BETA [Suspect]
     Dosage: DOSAGE FORM:PFS
     Route: 058
     Dates: start: 20080620
  2. TRIATEC [Concomitant]
     Dates: start: 20040101
  3. VERAPAMIL [Concomitant]
  4. ELISOR [Concomitant]
     Dates: start: 20040101
  5. KARDEGIC [Concomitant]
     Dates: start: 20040101
  6. ZYLORIC [Concomitant]
     Dates: start: 20040101
  7. EXOMUC [Concomitant]
     Dates: start: 20040101
  8. LASILIX [Concomitant]
  9. KAYEXALATE [Concomitant]
     Dates: start: 20020101
  10. KAYEXALATE [Concomitant]
  11. DOLIPRANE [Concomitant]
     Dates: start: 20040101

REACTIONS (1)
  - ILL-DEFINED DISORDER [None]
